FAERS Safety Report 4339873-X (Version None)
Quarter: 2004Q2

REPORT INFORMATION
  Report Type: 
  Country: None (occurrence: None)
  Receive Date: 20040416
  Receipt Date: 20040408
  Transmission Date: 20050107
  Serious: Yes (Death, Other)
  Sender: FDA-Public Use
  Company Number: 200411202JP

PATIENT
  Sex: Male

DRUGS (3)
  1. LANTUS [Suspect]
     Dosage: DOSE UNIT: UNITS
     Route: 058
  2. AMARYL [Suspect]
     Route: 048
  3. OPTIPEN (INSULIN PUMP) [Suspect]

REACTIONS (2)
  - HYPOGLYCAEMIA [None]
  - PNEUMONIA [None]
